FAERS Safety Report 16370403 (Version 1)
Quarter: 2019Q2

REPORT INFORMATION
  Report Type: Spontaneous
  Country: US (occurrence: US)
  Receive Date: 20190423
  Receipt Date: 20190423
  Transmission Date: 20190711
  Serious: Yes (Hospitalization)
  Sender: FDA-Public Use
  Company Number: None

PATIENT
  Age: 81 Year
  Sex: Female

DRUGS (1)
  1. FORTEO [Suspect]
     Active Substance: TERIPARATIDE
     Indication: PRODUCT USED FOR UNKNOWN INDICATION
     Dosage: 0.08ML QD INJECT SQ INTO THIGH OR ABDOMINAL WALL
     Route: 058
     Dates: start: 20190331

REACTIONS (1)
  - Vomiting [None]

NARRATIVE: CASE EVENT DATE: 20190410
